FAERS Safety Report 4945390-6 (Version None)
Quarter: 2006Q1

REPORT INFORMATION
  Report Type: 
  Country: None (occurrence: None)
  Receive Date: 20060315
  Receipt Date: 20060315
  Transmission Date: 20060701
  Serious: Yes (Other)
  Sender: FDA-Public Use
  Company Number: None

PATIENT
  Age: 52 Year
  Sex: Male
  Weight: 74.8435 kg

DRUGS (1)
  1. VIOXX [Suspect]
     Indication: ARTHRITIS
     Dosage: 25 MG DAILZ PO
     Route: 048
     Dates: start: 19990501, end: 20011110

REACTIONS (11)
  - CEREBROVASCULAR ACCIDENT [None]
  - CONSTIPATION [None]
  - DIZZINESS [None]
  - DRUG DOSE OMISSION [None]
  - DRUG EFFECT DECREASED [None]
  - FALL [None]
  - MIGRAINE [None]
  - OESOPHAGITIS [None]
  - SURGERY [None]
  - TRANSIENT ISCHAEMIC ATTACK [None]
  - VITH NERVE PARALYSIS [None]
